FAERS Safety Report 9843989 (Version 3)
Quarter: 2014Q4

REPORT INFORMATION
  Report Type: Spontaneous
  Country: US (occurrence: None)
  Receive Date: 20131223
  Receipt Date: 20141223
  Transmission Date: 20150529
  Serious: Yes (Other)
  Sender: FDA-Public Use
  Company Number: 1000050632

PATIENT
  Sex: Female

DRUGS (4)
  1. LINZESS [Suspect]
     Active Substance: LINACLOTIDE
     Indication: IRRITABLE BOWEL SYNDROME
     Route: 048
     Dates: start: 201308, end: 20131027
  2. EFFEXOR [Suspect]
     Active Substance: VENLAFAXINE HYDROCHLORIDE
     Indication: DEPRESSION
     Dosage: 112?5MG(37.5MG, 3 IN 1 D)
     Dates: start: 2001
  3. ATIVAN (LORAZEPAM (LORAZEPAM) [Concomitant]
  4. LINZESS [Suspect]
     Active Substance: LINACLOTIDE
     Indication: IRRITABLE BOWEL SYNDROME
     Dosage: 290 MCG (145 MCG, 2 IN 1 D), ORAL
     Route: 048
     Dates: start: 20131029

REACTIONS (13)
  - Drug ineffective [None]
  - Panic attack [None]
  - Abdominal distension [None]
  - Palpitations [None]
  - Asthenia [None]
  - Therapeutic response changed [None]
  - Diarrhoea [None]
  - Insomnia [None]
  - Hypersomnia [None]
  - Nail disorder [None]
  - Flatulence [None]
  - Bruxism [None]
  - Dehydration [None]

NARRATIVE: CASE EVENT DATE: 2013
